FAERS Safety Report 8054082-9 (Version None)
Quarter: 2012Q1

REPORT INFORMATION
  Report Type: 
  Country: None (occurrence: None)
  Receive Date: 20120118
  Receipt Date: 20120109
  Transmission Date: 20120608
  Serious: Yes (Other)
  Sender: FDA-Public Use
  Company Number: US-ALLERGAN-1200099US

PATIENT
  Age: 66 Year
  Sex: Female

DRUGS (6)
  1. NEVANAC [Suspect]
     Indication: CATARACT OPERATION
     Dosage: UNK
     Route: 047
     Dates: start: 20111026
  2. TETRACAINE HYDROCHLORIDE [Suspect]
     Indication: CATARACT OPERATION
     Dosage: UNK
     Route: 047
     Dates: start: 20111026, end: 20111026
  3. BETADINE OPHTHALMIC [Concomitant]
     Indication: CATARACT OPERATION
     Dosage: UNK
     Route: 061
     Dates: start: 20111026, end: 20111026
  4. BSS [Suspect]
     Indication: CATARACT OPERATION
     Dosage: UNK
     Route: 031
     Dates: start: 20111026, end: 20111026
  5. ZYMAXID [Suspect]
     Indication: CATARACT OPERATION
     Dosage: UNK
     Route: 047
     Dates: start: 20111026
  6. PREDNISOLONE ACETATE [Suspect]
     Indication: CATARACT OPERATION
     Dosage: UNK
     Route: 047
     Dates: start: 20111026

REACTIONS (2)
  - ENDOPHTHALMITIS [None]
  - TOXIC ANTERIOR SEGMENT SYNDROME [None]
